FAERS Safety Report 8155487-8 (Version None)
Quarter: 2012Q1

REPORT INFORMATION
  Report Type: 
  Country: None (occurrence: None)
  Receive Date: 20120222
  Receipt Date: 20120213
  Transmission Date: 20120608
  Serious: Yes (Hospitalization, Other)
  Sender: FDA-Public Use
  Company Number: US-ELI_LILLY_AND_COMPANY-US201009000472

PATIENT
  Sex: Female

DRUGS (7)
  1. FORTEO [Suspect]
     Dosage: 20 UG, QD
     Route: 058
  2. FORTEO [Suspect]
     Dosage: 20 UG, QD
     Route: 058
  3. FORTEO [Suspect]
     Dosage: 20 UG, DAILY (1/D)
     Route: 058
  4. FORTEO [Suspect]
     Dosage: 20 UG, QD
     Route: 058
  5. FORTEO [Suspect]
     Dosage: 20 UG, QD
     Route: 058
  6. FORTEO [Suspect]
     Indication: OSTEOPOROSIS
     Dosage: 20 UG, DAILY (1/D)
     Route: 058
  7. FORTEO [Suspect]
     Dosage: 20 UG, QD
     Route: 058

REACTIONS (15)
  - VITAMIN D DECREASED [None]
  - INSOMNIA [None]
  - INJECTION SITE ERYTHEMA [None]
  - ARTHRITIS [None]
  - NEPHROLITHIASIS [None]
  - RED BLOOD CELL COUNT DECREASED [None]
  - MOBILITY DECREASED [None]
  - ASTHENIA [None]
  - BACK DISORDER [None]
  - SCIATIC NERVE INJURY [None]
  - KNEE ARTHROPLASTY [None]
  - SOMNOLENCE [None]
  - COLONOSCOPY [None]
  - PYELONEPHRITIS [None]
  - LABORATORY TEST ABNORMAL [None]
